FAERS Safety Report 9759670 (Version 2)
Quarter: 2015Q3

REPORT INFORMATION
  Report Type: Spontaneous
  Country: US (occurrence: US)
  Receive Date: 20131216
  Receipt Date: 20150806
  Transmission Date: 20151125
  Serious: No
  Sender: FDA-Public Use
  Company Number: US-GILEAD-2010-0028602

PATIENT
  Age: 74 Year
  Sex: Female

DRUGS (16)
  1. NITROGLYCERIN. [Concomitant]
     Active Substance: NITROGLYCERIN
  2. COZAAR [Concomitant]
     Active Substance: LOSARTAN POTASSIUM
  3. LETAIRIS [Suspect]
     Active Substance: AMBRISENTAN
     Route: 048
     Dates: start: 20100323, end: 20100406
  4. NEOMYCIN [Concomitant]
     Active Substance: NEOMYCIN
  5. TORSEMIDE. [Concomitant]
     Active Substance: TORSEMIDE
  6. OMEPRAZOLE. [Concomitant]
     Active Substance: OMEPRAZOLE
  7. CENTRUM [Concomitant]
     Active Substance: VITAMINS
  8. PROTOPIC [Concomitant]
     Active Substance: TACROLIMUS
  9. NAFTIN [Concomitant]
     Active Substance: NAFTIFINE HYDROCHLORIDE
  10. POTASSIUM CHLORIDE. [Concomitant]
     Active Substance: POTASSIUM CHLORIDE
  11. ASPIRIN. [Concomitant]
     Active Substance: ASPIRIN
  12. ZOLPIDEM [Concomitant]
     Active Substance: ZOLPIDEM\ZOLPIDEM TARTRATE
  13. FLUTICASONE [Concomitant]
     Active Substance: FLUTICASONE\FLUTICASONE PROPIONATE
  14. MELOXICAM. [Concomitant]
     Active Substance: MELOXICAM
  15. FELODIPINE. [Concomitant]
     Active Substance: FELODIPINE
  16. ALBUTEROL. [Concomitant]
     Active Substance: ALBUTEROL

REACTIONS (1)
  - Fluid overload [Recovered/Resolved]

NARRATIVE: CASE EVENT DATE: 20100323
